FAERS Safety Report 9497629 (Version 1)
Quarter: 2013Q3

REPORT INFORMATION
  Report Type: Spontaneous
  Country: US (occurrence: None)
  Receive Date: 20130903
  Receipt Date: 20130903
  Transmission Date: 20140515
  Serious: Yes (Disabling)
  Sender: FDA-Public Use
  Company Number: None

PATIENT
  Age: 26 Year
  Sex: Male
  Weight: 76 kg

DRUGS (2)
  1. DEPRAX (TRAZODONE HYDROCHLORIDE) [Suspect]
     Indication: IRRITABLE BOWEL SYNDROME
     Route: 048
  2. PRISTIQ [Suspect]
     Indication: IRRITABLE BOWEL SYNDROME
     Route: 048

REACTIONS (3)
  - Vitreous floaters [None]
  - Condition aggravated [None]
  - Anorgasmia [None]
